FAERS Safety Report 19955506 (Version 1)
Quarter: 2021Q4

REPORT INFORMATION
  Report Type: Spontaneous
  Country: CN (occurrence: CN)
  Receive Date: 20211013
  Receipt Date: 20211013
  Transmission Date: 20220304
  Serious: Yes (Hospitalization, Other)
  Sender: FDA-Public Use
  Company Number: CN-BAXTER-2021BAX026339

PATIENT
  Age: 28 Year
  Sex: Female
  Weight: 56 kg

DRUGS (16)
  1. CYCLOPHOSPHAMIDE [Suspect]
     Active Substance: CYCLOPHOSPHAMIDE
     Indication: Non-Hodgkin^s lymphoma
     Dosage: FIRST CYCLE OF CHEMOTHERAPY
     Route: 041
  2. CYCLOPHOSPHAMIDE [Suspect]
     Active Substance: CYCLOPHOSPHAMIDE
     Dosage: CYCLOPHOSPHAMIDE POWDER FOR INJECTION 1.2G + 0.9% SODIUM CHLORIDE INJECTION 100ML
     Route: 041
     Dates: start: 20190622, end: 20190622
  3. SODIUM CHLORIDE [Suspect]
     Active Substance: SODIUM CHLORIDE
     Indication: Medication dilution
     Dosage: FIRST CYCLE OF CHEMOTHERAPY
     Route: 041
  4. SODIUM CHLORIDE [Suspect]
     Active Substance: SODIUM CHLORIDE
     Dosage: CYCLOPHOSPHAMIDE POWDER FOR INJECTION 1.2G + 0.9% SODIUM CHLORIDE INJECTION 100ML
     Route: 041
     Dates: start: 20190622, end: 20190622
  5. SODIUM CHLORIDE [Suspect]
     Active Substance: SODIUM CHLORIDE
     Dosage: ETOPOSIDE INTRA-PUMP INJECTION 0.08G +  0.9% SODIUM CHLORIDE INJECTION 300ML
     Route: 050
     Dates: start: 20190618, end: 20190622
  6. SODIUM CHLORIDE [Suspect]
     Active Substance: SODIUM CHLORIDE
     Dosage: VINDESINE SULFATE INTRAPUMP INJECTION 1MG + 0.9% SODIUM CHLORIDE INJECTION 300ML
     Route: 050
     Dates: start: 20190618, end: 20190622
  7. DEXTROSE [Suspect]
     Active Substance: DEXTROSE
     Indication: Medication dilution
     Dosage: FIRST CYCLE OF CHEMOTHERAPY
     Route: 041
  8. DEXTROSE [Suspect]
     Active Substance: DEXTROSE
     Dosage: DOXORUBICIN HYDROCHLORIDE LIPOSOME INJECTION 20 MG + 5% GLUCOSE INJECTION 250ML
     Route: 041
     Dates: start: 20190618, end: 20190620
  9. ETOPOSIDE [Suspect]
     Active Substance: ETOPOSIDE
     Indication: Non-Hodgkin^s lymphoma
     Dosage: FIRST CYCLE OF CHEMOTHERAPY
     Route: 050
  10. ETOPOSIDE [Suspect]
     Active Substance: ETOPOSIDE
     Dosage: ETOPOSIDE INTRA-PUMP INJECTION 0.08G +  0.9% SODIUM CHLORIDE INJECTION 300ML
     Route: 050
     Dates: start: 20190618, end: 20190622
  11. VINDESINE SULFATE [Suspect]
     Active Substance: VINDESINE SULFATE
     Indication: Non-Hodgkin^s lymphoma
     Dosage: FIRST CYCLE OF CHEMOTHERAPY
     Route: 050
  12. VINDESINE SULFATE [Suspect]
     Active Substance: VINDESINE SULFATE
     Dosage: VINDESINE SULFATE INTRAPUMP INJECTION 1MG + 0.9% SODIUM CHLORIDE INJECTION 300ML
     Route: 050
     Dates: start: 20190618, end: 20190622
  13. DOXORUBICIN HYDROCHLORIDE [Suspect]
     Active Substance: DOXORUBICIN HYDROCHLORIDE
     Indication: Non-Hodgkin^s lymphoma
     Dosage: FIRST CYCLE OF CHEMOTHERAPY
     Route: 041
  14. DOXORUBICIN HYDROCHLORIDE [Suspect]
     Active Substance: DOXORUBICIN HYDROCHLORIDE
     Dosage: DOXORUBICIN HYDROCHLORIDE LIPOSOME INJECTION 20 MG + 5% GLUCOSE INJECTION 250ML
     Route: 041
     Dates: start: 20190618, end: 20190620
  15. PREDNISONE ACETATE [Suspect]
     Active Substance: PREDNISONE ACETATE
     Indication: Non-Hodgkin^s lymphoma
     Dosage: FIRST CYCLE OF CHEMOTHERAPY
     Route: 048
  16. PREDNISONE ACETATE [Suspect]
     Active Substance: PREDNISONE ACETATE
     Dosage: SECOND CYCLE OF CHEMOTHERAPY
     Route: 048
     Dates: start: 20190618, end: 20190628

REACTIONS (3)
  - Myelosuppression [Recovered/Resolved]
  - Myelosuppression [Recovered/Resolved]
  - Myelosuppression [Recovering/Resolving]

NARRATIVE: CASE EVENT DATE: 20190627
